FAERS Safety Report 7777138-4 (Version None)
Quarter: 2011Q3

REPORT INFORMATION
  Report Type: 
  Country: None (occurrence: None)
  Receive Date: 20110926
  Receipt Date: 20110913
  Transmission Date: 20111222
  Serious: Yes (Other)
  Sender: FDA-Public Use
  Company Number: JP-SANOFI-AVENTIS-2011SA018220

PATIENT
  Age: 37 Year
  Sex: Female
  Weight: 81.2 kg

DRUGS (11)
  1. OLOPATADINE HCL [Concomitant]
     Route: 048
     Dates: start: 20101018, end: 20101126
  2. SOLOSTAR [Suspect]
     Indication: DEVICE THERAPY
     Route: 065
     Dates: start: 20091201, end: 20100530
  3. METFORMIN HYDROCHLORIDE [Concomitant]
     Dosage: 2 TAB EACH AFTER BREAKFAST AND SUPPER
     Route: 048
     Dates: start: 20110209, end: 20110406
  4. LANTUS [Suspect]
     Indication: TYPE 2 DIABETES MELLITUS
     Route: 058
     Dates: start: 20091201, end: 20091214
  5. LANTUS [Suspect]
     Route: 058
     Dates: start: 20091222, end: 20100530
  6. EXENATIDE [Suspect]
     Indication: TYPE 2 DIABETES MELLITUS
     Route: 058
     Dates: start: 20100601, end: 20101124
  7. METFORMIN HYDROCHLORIDE [Concomitant]
     Indication: TYPE 2 DIABETES MELLITUS
     Dosage: AFTER BREAKFAST
     Route: 048
     Dates: start: 20090703, end: 20110123
  8. LANTUS [Suspect]
     Route: 058
     Dates: start: 20091215, end: 20091221
  9. METFORMIN HYDROCHLORIDE [Concomitant]
     Dosage: 1 TAB EACH AFTER BREAKFAST AND SUPPER
     Route: 048
     Dates: start: 20110124, end: 20110208
  10. OLOPATADINE HCL [Concomitant]
     Route: 048
     Dates: start: 20100223, end: 20100531
  11. OLOPATADINE HCL [Concomitant]
     Route: 048
     Dates: start: 20110209, end: 20110505

REACTIONS (1)
  - THYROID CANCER [None]
